FAERS Safety Report 4872730-9 (Version None)
Quarter: 2006Q1

REPORT INFORMATION
  Report Type: 
  Country: None (occurrence: None)
  Receive Date: 20060103
  Receipt Date: 20051221
  Transmission Date: 20060701
  Serious: Yes (Other)
  Sender: FDA-Public Use
  Company Number: US200512003782

PATIENT
  Age: 67 Year
  Sex: Male

DRUGS (2)
  1. INSULIN [Suspect]
     Indication: DIABETES MELLITUS
     Dates: start: 19850101
  2. HUMALOG [Suspect]
     Indication: DIABETES MELLITUS
     Dates: start: 19990101

REACTIONS (6)
  - CATARACT [None]
  - DIABETES MELLITUS INADEQUATE CONTROL [None]
  - DRUG INEFFECTIVE [None]
  - PHARMACEUTICAL PRODUCT COMPLAINT [None]
  - RETINAL DEGENERATION [None]
  - VISUAL ACUITY REDUCED [None]
